FAERS Safety Report 8377259-1 (Version None)
Quarter: 2012Q2

REPORT INFORMATION
  Report Type: 
  Country: None (occurrence: None)
  Receive Date: 20120521
  Receipt Date: 20120509
  Transmission Date: 20120825
  Serious: Yes (Other)
  Sender: FDA-Public Use
  Company Number: 2012AP000864

PATIENT
  Age: 33 Year
  Sex: Male

DRUGS (13)
  1. BECLOMETHASONE DIPROPIONATE [Concomitant]
  2. OMEPRAZOLE [Concomitant]
  3. PEGINTERFERON ALFA-2A [Concomitant]
  4. VENLAFAXINE [Concomitant]
  5. RIBAVIRIN [Suspect]
     Indication: HEPATITIS C
     Dosage: 1200 MG;PO
     Route: 048
     Dates: start: 20110516
  6. CLOZAPINE [Suspect]
     Dosage: 100 MG;PO;BID
     Route: 048
     Dates: start: 20120319, end: 20120401
  7. CLOZAPINE [Suspect]
     Dosage: 100 MG;PO;BID
     Route: 048
     Dates: start: 20111025, end: 20120307
  8. MOVICOL /01625101/ [Concomitant]
  9. CALCICHEW D3 (LEKOVIT CA) [Concomitant]
  10. CLOZAPINE [Concomitant]
  11. RAMIPRIL [Suspect]
     Indication: HYPERTENSION
     Dosage: 2.5 MG;QD ; 5 MG;QD ; 10 MG;QD
     Dates: start: 20120302
  12. RAMIPRIL [Suspect]
     Indication: HYPERTENSION
     Dosage: 2.5 MG;QD ; 5 MG;QD ; 10 MG;QD
     Dates: start: 20110822
  13. RAMIPRIL [Suspect]
     Indication: HYPERTENSION
     Dosage: 2.5 MG;QD ; 5 MG;QD ; 10 MG;QD
     Dates: start: 20120306, end: 20120309

REACTIONS (4)
  - DRUG INTERACTION [None]
  - NEUTROPHIL COUNT DECREASED [None]
  - WHITE BLOOD CELL COUNT DECREASED [None]
  - NEUTROPENIA [None]
